FAERS Safety Report 15035692 (Version 1)
Quarter: 2018Q2

REPORT INFORMATION
  Report Type: Spontaneous
  Country: US (occurrence: None)
  Receive Date: 20180619
  Receipt Date: 20180619
  Transmission Date: 20180711
  Serious: Yes (Disabling, Other)
  Sender: FDA-Public Use
  Company Number: 35B0EADE594672

PATIENT
  Age: 70 Year
  Sex: Female

DRUGS (1)
  1. NATURALCARE RINGSTOP (HOMEOPATHIC) [Suspect]
     Active Substance: HOMEOPATHICS
     Dosage: 3-4 DROPS, 2X DAILY

REACTIONS (1)
  - Deafness unilateral [None]

NARRATIVE: CASE EVENT DATE: 20180527
